FAERS Safety Report 6425195-X (Version None)
Quarter: 2009Q4

REPORT INFORMATION
  Report Type: 
  Country: None (occurrence: None)
  Receive Date: 20091103
  Receipt Date: 20091019
  Transmission Date: 20100525
  Serious: Yes (Death, Other)
  Sender: FDA-Public Use
  Company Number: US-BAYER-200916412NA

PATIENT
  Sex: Male

DRUGS (7)
  1. MAGNEVIST [Suspect]
     Indication: DRUG USE FOR UNKNOWN INDICATION
     Dates: start: 20060816, end: 20060816
  2. MAGNEVIST [Suspect]
     Dates: start: 20060821, end: 20060821
  3. MAGNEVIST [Suspect]
     Dates: start: 20060830, end: 20060830
  4. MAGNEVIST [Suspect]
     Dates: start: 20070302, end: 20070302
  5. OMNISCAN [Suspect]
     Indication: DRUG USE FOR UNKNOWN INDICATION
     Dates: start: 20060406, end: 20060406
  6. OMNISCAN [Suspect]
     Dates: start: 20060803, end: 20060803
  7. OMNISCAN [Suspect]
     Dates: start: 20060924, end: 20060924

REACTIONS (6)
  - ANXIETY [None]
  - FIBROSIS [None]
  - NEPHROGENIC SYSTEMIC FIBROSIS [None]
  - PAIN [None]
  - PULMONARY FIBROSIS [None]
  - THERAPEUTIC AGENT TOXICITY [None]
